FAERS Safety Report 5778430-5 (Version None)
Quarter: 2008Q2

REPORT INFORMATION
  Report Type: 
  Country: None (occurrence: None)
  Receive Date: 20080618
  Receipt Date: 20080618
  Transmission Date: 20081010
  Serious: Yes (Hospitalization)
  Sender: FDA-Public Use
  Company Number: None

PATIENT
  Age: 64 Year
  Sex: Male

DRUGS (1)
  1. EMTRICITABINE/TENOFOVIR [Suspect]
     Indication: HIV INFECTION
     Dosage: 1 TAB EVERY DAY PO
     Route: 048
     Dates: start: 20070215, end: 20080116

REACTIONS (2)
  - HAEMODIALYSIS [None]
  - RENAL FAILURE ACUTE [None]
